FAERS Safety Report 7202822-0 (Version None)
Quarter: 2010Q4

REPORT INFORMATION
  Report Type: 
  Country: None (occurrence: None)
  Receive Date: 20101229
  Receipt Date: 20101220
  Transmission Date: 20110411
  Serious: Yes (Other)
  Sender: FDA-Public Use
  Company Number: BR-PFIZER INC-2010133200

PATIENT
  Age: 60 Year
  Sex: Female

DRUGS (5)
  1. LYRICA [Suspect]
     Indication: BONE DISORDER
     Dosage: 75 MG, 1X/DAY AT NIGHT
     Route: 048
     Dates: start: 20100701, end: 20100101
  2. PARACETAMOL [Concomitant]
     Dosage: UNK
  3. OMEPRAZOLE [Concomitant]
     Dosage: UNK
  4. NIMESULIDE [Concomitant]
     Dosage: UNK
  5. CORTISONE [Concomitant]
     Dosage: UNK

REACTIONS (2)
  - ANOSMIA [None]
  - MENTAL IMPAIRMENT [None]
